FAERS Safety Report 15680712 (Version 1)
Quarter: 2018Q4

REPORT INFORMATION
  Report Type: Spontaneous
  Country: US (occurrence: US)
  Receive Date: 20181120
  Receipt Date: 20181120
  Transmission Date: 20190205
  Serious: No
  Sender: FDA-Public Use
  Company Number: None

PATIENT
  Age: 60 Year
  Sex: Female

DRUGS (1)
  1. PROLIA [Suspect]
     Active Substance: DENOSUMAB
     Indication: SENILE OSTEOPOROSIS
     Dosage: 60 MG ONCE EVERY 6 MONTHS SUBCUTANEOUSLY
     Route: 058
     Dates: start: 20180920

REACTIONS (3)
  - Pain in extremity [None]
  - Rash papular [None]
  - Rash [None]

NARRATIVE: CASE EVENT DATE: 20181115
